FAERS Safety Report 5222979-0 (Version None)
Quarter: 2007Q1

REPORT INFORMATION
  Report Type: 
  Country: None (occurrence: None)
  Receive Date: 20061201
  Receipt Date: 20060707
  Transmission Date: 20070707
  Serious: No
  Sender: FDA-Public Use
  Company Number: 2006PV017202

PATIENT
  Age: 63 Year
  Sex: Female
  Weight: 104.3273 kg

DRUGS (9)
  1. BYETTA [Suspect]
     Indication: DIABETES MELLITUS NON-INSULIN-DEPENDENT
     Dosage: 5 MCG;BID;SC
     Route: 058
     Dates: start: 20060630
  2. AMARYL [Concomitant]
  3. GLUCOPHAGE [Concomitant]
  4. HUMALOG [Concomitant]
  5. PLAVIX [Concomitant]
  6. NORVASC [Concomitant]
  7. IMDUR [Concomitant]
  8. COZAAR [Concomitant]
  9. CHOLESTEROL MEDICATION [Concomitant]

REACTIONS (6)
  - ASTHENIA [None]
  - BLOOD GLUCOSE INCREASED [None]
  - DRUG INEFFECTIVE [None]
  - DYSPEPSIA [None]
  - FATIGUE [None]
  - NAUSEA [None]
